FAERS Safety Report 7967023-7 (Version None)
Quarter: 2011Q4

REPORT INFORMATION
  Report Type: 
  Country: None (occurrence: None)
  Receive Date: 20111207
  Receipt Date: 20111207
  Transmission Date: 20120403
  Serious: Yes (Life-Threatening)
  Sender: FDA-Public Use
  Company Number: None

PATIENT
  Age: 63 Year
  Sex: Male

DRUGS (1)
  1. MIDAZOLAM [Suspect]
     Indication: SURGERY
     Dosage: 1 MG ONCE IV
     Route: 042
     Dates: start: 20111123, end: 20111123

REACTIONS (6)
  - RESPIRATORY DEPRESSION [None]
  - COLD SWEAT [None]
  - OBSTRUCTIVE AIRWAYS DISORDER [None]
  - UNRESPONSIVE TO STIMULI [None]
  - URINARY INCONTINENCE [None]
  - TACHYCARDIA [None]
